FAERS Safety Report 10041949 (Version 2)
Quarter: 2014Q1

REPORT INFORMATION
  Report Type: Report from Study
  Country: US (occurrence: US)
  Receive Date: 20140327
  Receipt Date: 20140327
  Transmission Date: 20141002
  Serious: Yes (Other)
  Sender: FDA-Public Use
  Company Number: US-ALEXION-A201000858

PATIENT
  Sex: Female

DRUGS (7)
  1. SOLIRIS [Suspect]
     Indication: PAROXYSMAL NOCTURNAL HAEMOGLOBINURIA
     Dosage: 600 MG, QW
     Route: 042
     Dates: start: 20100720
  2. PERCOCET                           /00446701/ [Concomitant]
     Dosage: 5/325 MG
     Route: 048
  3. ATIVAN [Concomitant]
     Dosage: 1 MG, UNK
     Route: 048
  4. AMBIEN [Concomitant]
     Dosage: 10 MG, UNK
     Route: 048
  5. METHIMAZOLE [Concomitant]
     Dosage: 10 MG, UNK
     Route: 048
  6. CYMBALTA [Concomitant]
     Dosage: 60 MG, UNK
     Route: 048
  7. COUMADIN                           /00014802/ [Concomitant]
     Dosage: 2.5 MG, UNK
     Route: 048

REACTIONS (4)
  - Central venous catheterisation [Not Recovered/Not Resolved]
  - Fatigue [Not Recovered/Not Resolved]
  - Syncope [Not Recovered/Not Resolved]
  - Abdominal pain [Not Recovered/Not Resolved]
